FAERS Safety Report 24215074 (Version 2)
Quarter: 2024Q3

REPORT INFORMATION
  Report Type: Spontaneous
  Country: IN (occurrence: IN)
  Receive Date: 20240816
  Receipt Date: 20240902
  Transmission Date: 20241016
  Serious: Yes (Hospitalization, Other)
  Sender: CHATTEM
  Company Number: IN-OPELLA-2024OHG026906

PATIENT
  Age: 6 Year
  Sex: Male
  Weight: 21.7 kg

DRUGS (3)
  1. ALLEGRA [Suspect]
     Active Substance: FEXOFENADINE HYDROCHLORIDE
     Indication: Cough
     Dosage: MFD: APR-2023
     Route: 065
     Dates: start: 20240713
  2. ALLEGRA [Suspect]
     Active Substance: FEXOFENADINE HYDROCHLORIDE
     Indication: Sneezing
  3. ACETAMINOPHEN\IBUPROFEN [Suspect]
     Active Substance: ACETAMINOPHEN\IBUPROFEN
     Indication: Pyrexia
     Dosage: MFD DATE: FEB-2024
     Route: 065
     Dates: start: 20240713

REACTIONS (4)
  - Febrile convulsion [Recovered/Resolved]
  - Foaming at mouth [Recovered/Resolved]
  - Musculoskeletal stiffness [Recovered/Resolved]
  - Loss of consciousness [Recovered/Resolved]

NARRATIVE: CASE EVENT DATE: 20240713
